FAERS Safety Report 13596640 (Version 1)
Quarter: 2017Q2

REPORT INFORMATION
  Report Type: Spontaneous
  Country: US (occurrence: US)
  Receive Date: 20170531
  Receipt Date: 20170531
  Transmission Date: 20170830
  Serious: Yes (Hospitalization, Other)
  Sender: FDA-Public Use
  Company Number: US-ZYDUS-015291

PATIENT
  Age: 44 Year
  Sex: Male

DRUGS (3)
  1. BUDESONIDE. [Suspect]
     Active Substance: BUDESONIDE
     Indication: IMMUNOSUPPRESSANT DRUG THERAPY
     Route: 065
  2. ADALIMUMAB [Suspect]
     Active Substance: ADALIMUMAB
     Indication: IMMUNOSUPPRESSANT DRUG THERAPY
     Route: 065
  3. MESALAZINE [Concomitant]
     Active Substance: MESALAMINE
     Indication: PRODUCT USED FOR UNKNOWN INDICATION
     Route: 065

REACTIONS (14)
  - Tachycardia [Unknown]
  - Granuloma [Unknown]
  - C-reactive protein increased [Recovered/Resolved]
  - Mycobacterial infection [Unknown]
  - Histiocytosis haematophagic [Unknown]
  - Hypertriglyceridaemia [Recovered/Resolved]
  - Pyrexia [Recovered/Resolved]
  - Pancytopenia [Recovered/Resolved]
  - Transaminases increased [Recovered/Resolved]
  - Infection reactivation [Unknown]
  - Hypoxia [Unknown]
  - Pleural effusion [Unknown]
  - Pulmonary mass [Unknown]
  - Hyperferritinaemia [Recovered/Resolved]
